FAERS Safety Report 6742699-0 (Version None)
Quarter: 2010Q2

REPORT INFORMATION
  Report Type: 
  Country: None (occurrence: None)
  Receive Date: 20100526
  Receipt Date: 20100121
  Transmission Date: 20101027
  Serious: No
  Sender: FDA-Public Use
  Company Number: US-ABBOTT-10P-163-0618759-00

PATIENT
  Sex: Male
  Weight: 59.474 kg

DRUGS (8)
  1. ZEMPLAR [Suspect]
     Indication: HYPERPARATHYROIDISM
     Dates: start: 20090101
  2. ZEMPLAR [Suspect]
     Dates: start: 20090401
  3. GLYBURIDE [Concomitant]
     Indication: DIABETES MELLITUS
  4. AMLODIPINE [Concomitant]
     Indication: HYPERTENSION
  5. LISINOPRIL [Concomitant]
     Indication: HYPERTENSION
  6. PRILOSEC [Concomitant]
     Indication: GASTROOESOPHAGEAL REFLUX DISEASE
  7. LOVAZA [Concomitant]
     Indication: ROUTINE HEALTH MAINTENANCE
  8. FLOMAX [Concomitant]
     Indication: BLOOD CREATININE INCREASED

REACTIONS (2)
  - FEELING ABNORMAL [None]
  - MENTAL IMPAIRMENT [None]
